FAERS Safety Report 17213565 (Version 5)
Quarter: 2020Q1

REPORT INFORMATION
  Report Type: Spontaneous
  Country: CA (occurrence: CA)
  Receive Date: 20191230
  Receipt Date: 20200311
  Transmission Date: 20200409
  Serious: Yes (Other)
  Sender: FDA-Public Use
  Company Number: CA-PFIZER INC-2019558613

PATIENT
  Age: 38 Year
  Sex: Female
  Weight: 66 kg

DRUGS (11)
  1. SULFASALAZINE. [Concomitant]
     Active Substance: SULFASALAZINE
     Dosage: UNK
     Dates: start: 201909, end: 201912
  2. PROCTOL [Concomitant]
     Dosage: UNK, 1X/DAY AS NEEDED
     Route: 054
     Dates: start: 201506
  3. PROCTOSEDYL [CINCHOCAINE HYDROCHLORIDE;HYDROCORTISONE] [Concomitant]
     Dosage: UNK,
     Route: 061
  4. METHOTREXATE SODIUM. [Suspect]
     Active Substance: METHOTREXATE SODIUM
     Dosage: 25 MG, WEEKLY
     Route: 048
     Dates: start: 201808
  5. SALOFALK [MESALAZINE] [Concomitant]
     Active Substance: MESALAMINE
     Indication: CROHN^S DISEASE
     Dosage: 1 G, 1X/DAY
     Route: 054
     Dates: start: 201506
  6. ENTYVIO [Concomitant]
     Active Substance: VEDOLIZUMAB
     Dosage: UNK, CYCLIC (EVERY 4 WEEKS)
     Dates: start: 201804
  7. PROCTOSEDYL [CINCHOCAINE HYDROCHLORIDE;HYDROCORTISONE] [Concomitant]
     Dosage: UNK UNK, 1X/DAY AS NEEDED
     Route: 061
  8. CORTIMENT [BUDESONIDE] [Concomitant]
     Active Substance: BUDESONIDE
     Indication: CROHN^S DISEASE
     Dosage: 9 MG, 1X/DAY
     Route: 048
     Dates: start: 201801
  9. CORTENEMA [Concomitant]
     Active Substance: HYDROCORTISONE
     Indication: CROHN^S DISEASE
     Dosage: 1 DF, QHS (EVERY NIGHT)
     Dates: start: 201506
  10. MICRONOR [Concomitant]
     Active Substance: NORETHINDRONE
     Indication: CONTRACEPTION
     Dosage: UNK
     Route: 065
  11. ZOLPIDEM [Concomitant]
     Active Substance: ZOLPIDEM TARTRATE
     Indication: SLEEP DISORDER
     Dosage: UNK, QHS (EVERY NIGHT)

REACTIONS (9)
  - Abnormal faeces [Unknown]
  - Crohn^s disease [Unknown]
  - Erythema nodosum [Recovered/Resolved]
  - Arthralgia [Unknown]
  - Bone density decreased [Unknown]
  - Nasopharyngitis [Unknown]
  - Drug ineffective [Unknown]
  - Lung opacity [Unknown]
  - Atelectasis [Unknown]

NARRATIVE: CASE EVENT DATE: 201911
